FAERS Safety Report 21424681 (Version 4)
Quarter: 2022Q4

REPORT INFORMATION
  Report Type: Report from Study
  Country: KR (occurrence: KR)
  Receive Date: 20221007
  Receipt Date: 20221123
  Transmission Date: 20230113
  Serious: Yes (Hospitalization, Other)
  Sender: FDA-Public Use
  Company Number: KR-EXELIXIS-XL18422054664

PATIENT
  Age: 63 Year
  Sex: Male
  Weight: 64.4 kg

DRUGS (12)
  1. IPILIMUMAB [Suspect]
     Active Substance: IPILIMUMAB
     Indication: Renal cell carcinoma
     Dosage: 4 DOSES. ?ON 10 DEC 2020, THE PATIENT RECEIVED THE MOST RECENT DOSE OF IPILIMUMAB PRIOR TO THE EVENT
     Route: 042
     Dates: start: 20201118, end: 20210121
  2. CABOZANTINIB [Suspect]
     Active Substance: CABOZANTINIB
     Indication: Renal cell carcinoma
     Dosage: ON 29 DEC 2020, THE PATIENT RECEIVED THE MOST RECENT DOSE OF BLINDED STUDY TREATMENT PRIOR TO THE EV
     Route: 048
     Dates: start: 20201118, end: 20210121
  3. LEVOTHYROXINE SODIUM [Concomitant]
     Active Substance: LEVOTHYROXINE SODIUM
     Indication: Hypothyroidism
     Route: 065
  4. PREDNISOLONE [Concomitant]
     Active Substance: PREDNISOLONE
     Indication: Immune-mediated lung disease
     Route: 065
  5. ERDOSTEINE [Concomitant]
     Active Substance: ERDOSTEINE
     Indication: Product used for unknown indication
     Route: 065
  6. RABIET [Concomitant]
     Indication: Gastritis prophylaxis
     Route: 065
     Dates: start: 20220921
  7. TAZOPERAN [Concomitant]
     Indication: Infection prophylaxis
     Route: 065
     Dates: start: 20220802
  8. TAZOPERAN [Concomitant]
     Route: 065
     Dates: start: 20220921
  9. LEVOFLOXACIN [Concomitant]
     Active Substance: LEVOFLOXACIN
     Indication: Infection prophylaxis
     Route: 065
     Dates: start: 20220803
  10. HYSONE [HYDROCORTISONE] [Concomitant]
     Indication: Adrenal insufficiency
     Route: 065
  11. METOCLOPRAMIDE HYDROCHLORIDE [Concomitant]
     Active Substance: METOCLOPRAMIDE HYDROCHLORIDE
     Indication: Gastritis prophylaxis
     Route: 065
     Dates: start: 20220921
  12. MUCOMYST [Concomitant]
     Active Substance: ACETYLCYSTEINE
     Indication: Prophylaxis
     Route: 065
     Dates: start: 20220921

REACTIONS (2)
  - Immune-mediated lung disease [Recovered/Resolved]
  - Pneumonia [Recovered/Resolved]

NARRATIVE: CASE EVENT DATE: 20220802
